FAERS Safety Report 18674542 (Version 3)
Quarter: 2021Q1

REPORT INFORMATION
  Report Type: Report from Study
  Country: US (occurrence: US)
  Receive Date: 20201228
  Receipt Date: 20210212
  Transmission Date: 20210419
  Serious: Yes (Other)
  Sender: FDA-Public Use
  Company Number: US-UCBSA-2020050141

PATIENT
  Age: 74 Year
  Sex: Male
  Weight: 73.02 kg

DRUGS (9)
  1. KEPPRA [Suspect]
     Active Substance: LEVETIRACETAM
     Indication: SEIZURE
     Dosage: 1000 MILLIGRAM, 2X/DAY (BID)
     Route: 048
     Dates: start: 201912
  2. DILANTIN [Suspect]
     Active Substance: PHENYTOIN
     Dosage: 350 MG DAILY
  3. LACOSAMIDE. [Suspect]
     Active Substance: LACOSAMIDE
     Indication: EPILEPSY
     Dosage: 50 MILLIGRAM, 2X/DAY (BID)
     Route: 048
     Dates: start: 20201229
  4. LORAZEPAM. [Concomitant]
     Active Substance: LORAZEPAM
     Indication: SEIZURE
     Dosage: UNK
  5. LACOSAMIDE. [Suspect]
     Active Substance: LACOSAMIDE
     Indication: SEIZURE
     Dosage: 100 MILLIGRAM, 2X/DAY (BID)
     Route: 048
     Dates: end: 20210119
  6. KEPPRA [Suspect]
     Active Substance: LEVETIRACETAM
     Dosage: 1000 MILLIGRAM, 2X/DAY (BID)
     Route: 048
     Dates: start: 20210105
  7. KEPPRA [Suspect]
     Active Substance: LEVETIRACETAM
     Dosage: DECREASED DSOE (750 MG IN THE MORNING AND 1000 MG AT NIGHT)
     Route: 048
     Dates: start: 20201229
  8. DILANTIN [Suspect]
     Active Substance: PHENYTOIN
     Indication: SEIZURE
     Dosage: UNK
     Dates: start: 201912
  9. DILANTIN [Suspect]
     Active Substance: PHENYTOIN
     Dosage: DECREASED DSOE (300 MG DAILY)

REACTIONS (8)
  - Hypoaesthesia [Unknown]
  - Product use issue [Unknown]
  - Seizure [Not Recovered/Not Resolved]
  - Anticonvulsant drug level decreased [Unknown]
  - Balance disorder [Not Recovered/Not Resolved]
  - Fall [Unknown]
  - Intentional product misuse [Unknown]
  - Confusional state [Unknown]

NARRATIVE: CASE EVENT DATE: 2020
